FAERS Safety Report 8916590 (Version 2)
Quarter: 2014Q1

REPORT INFORMATION
  Report Type: Spontaneous
  Country: US (occurrence: US)
  Receive Date: 20121120
  Receipt Date: 20140127
  Transmission Date: 20141002
  Serious: Yes (Other)
  Sender: FDA-Public Use
  Company Number: US-BAYER-2012-120762

PATIENT
  Age: 30 Year
  Sex: Female

DRUGS (8)
  1. YAZ [Suspect]
     Dosage: UNK
     Dates: start: 2010
  2. LIDOCAINE W/PRILOCAINE [Concomitant]
     Dosage: UNK
     Route: 061
     Dates: start: 20110807
  3. PHENTERMINE [Concomitant]
     Dosage: 37.5MG
     Route: 048
     Dates: start: 20110810
  4. PANTOPRAZOLE [Concomitant]
     Dosage: 40MG
     Route: 048
     Dates: start: 20110817
  5. HYDROCODONE W/ACETAMINOPHEN [Concomitant]
     Dosage: 5-500MG
     Route: 048
     Dates: start: 20110817
  6. OXYCODONE W/PARACETAMOL [Concomitant]
     Dosage: 5-325MG
     Route: 048
     Dates: start: 20110910
  7. SUCRALFATE [Concomitant]
     Dosage: 1GM
     Route: 048
     Dates: start: 20110914
  8. DOXEPIN [Concomitant]
     Dosage: 25MG
     Route: 048
     Dates: start: 20110930

REACTIONS (8)
  - Gallbladder injury [None]
  - Cholecystitis [None]
  - Pain [None]
  - Injury [None]
  - General physical health deterioration [None]
  - Anxiety [None]
  - Emotional distress [None]
  - Pain [None]
